FAERS Safety Report 7514969-X (Version None)
Quarter: 2011Q2

REPORT INFORMATION
  Report Type: 
  Country: None (occurrence: None)
  Receive Date: 20110601
  Receipt Date: 20110524
  Transmission Date: 20111010
  Serious: Yes (Other)
  Sender: FDA-Public Use
  Company Number: US-SANOFI-AVENTIS-2011SA030054

PATIENT
  Age: 72 Year
  Sex: Female
  Weight: 165 kg

DRUGS (5)
  1. OPTICLICK [Suspect]
     Indication: TYPE 2 DIABETES MELLITUS
     Dates: start: 20060101
  2. LANTUS [Suspect]
     Indication: TYPE 2 DIABETES MELLITUS
     Dosage: DOSE:18 UNIT(S)
     Route: 058
     Dates: start: 20060101
  3. SIMVASTATIN [Concomitant]
  4. METFORMIN HCL [Concomitant]
  5. AMLODIPINE BESYLATE [Concomitant]
     Indication: BLOOD PRESSURE

REACTIONS (5)
  - ROAD TRAFFIC ACCIDENT [None]
  - FACE INJURY [None]
  - LUNG NEOPLASM MALIGNANT [None]
  - SKIN CANCER [None]
  - HYPOGLYCAEMIA [None]
